FAERS Safety Report 20698725 (Version 1)
Quarter: 2022Q2

REPORT INFORMATION
  Report Type: Report from Study
  Country: US (occurrence: US)
  Receive Date: 20220412
  Receipt Date: 20220412
  Transmission Date: 20220721
  Serious: Yes (Other)
  Sender: FDA-Public Use
  Company Number: US-NOVARTISPH-NVSC2022US080789

PATIENT
  Age: 65 Year
  Sex: Female

DRUGS (1)
  1. TREPROSTINIL [Suspect]
     Active Substance: TREPROSTINIL
     Indication: Pulmonary arterial hypertension
     Dosage: UNK, CONT (111NG/KG/MIN)
     Route: 042
     Dates: start: 20160424

REACTIONS (1)
  - Gastrointestinal arteriovenous malformation [Unknown]

NARRATIVE: CASE EVENT DATE: 20220405
